FAERS Safety Report 7433162-2 (Version None)
Quarter: 2011Q2

REPORT INFORMATION
  Report Type: 
  Country: None (occurrence: None)
  Receive Date: 20110422
  Receipt Date: 20110413
  Transmission Date: 20111010
  Serious: Yes (Other)
  Sender: FDA-Public Use
  Company Number: US-ASTRAZENECA-2011SE21683

PATIENT
  Age: 81 Year
  Sex: Female

DRUGS (3)
  1. ATACAND [Suspect]
     Route: 048
  2. NEXIUM [Suspect]
     Route: 048
  3. SYMBICORT [Suspect]
     Route: 055

REACTIONS (3)
  - LOSS OF CONSCIOUSNESS [None]
  - TOOTH EXTRACTION [None]
  - BLOOD PRESSURE FLUCTUATION [None]
